FAERS Safety Report 4628662-4 (Version None)
Quarter: 2005Q2

REPORT INFORMATION
  Report Type: 
  Country: None (occurrence: None)
  Receive Date: 20050406
  Receipt Date: 20050328
  Transmission Date: 20051028
  Serious: Yes (Other)
  Sender: FDA-Public Use
  Company Number: HQWYE477629MAR05

PATIENT
  Age: 47 Year
  Sex: Female

DRUGS (2)
  1. EFFEXOR XR [Suspect]
     Dosage: SEE IMAGE
  2. LEXAPRO [Concomitant]

REACTIONS (5)
  - AGGRESSION [None]
  - ANTISOCIAL BEHAVIOUR [None]
  - DECREASED INTEREST [None]
  - IMPULSIVE BEHAVIOUR [None]
  - OBSESSIVE-COMPULSIVE DISORDER [None]
